FAERS Safety Report 19984371 (Version 2)
Quarter: 2021Q4

REPORT INFORMATION
  Report Type: Report from Study
  Country: US (occurrence: US)
  Receive Date: 20211022
  Receipt Date: 20211109
  Transmission Date: 20220303
  Serious: Yes (Disabling)
  Sender: FDA-Public Use
  Company Number: US-JNJFOC-20211026109

PATIENT
  Sex: Male

DRUGS (2)
  1. SPRAVATO [Suspect]
     Active Substance: ESKETAMINE
     Indication: Depression
     Dosage: 56 MG, 9 TOTAL DOSES
     Dates: start: 20210510, end: 20210617
  2. SPRAVATO [Suspect]
     Active Substance: ESKETAMINE
     Dosage: 84 MG, 2 TOTAL DOSES
     Dates: start: 20210701, end: 20210709

REACTIONS (1)
  - Drug ineffective [Unknown]
